FAERS Safety Report 18962045 (Version 4)
Quarter: 2024Q2

REPORT INFORMATION
  Report Type: Report from Study
  Country: ES (occurrence: ES)
  Receive Date: 20210302
  Receipt Date: 20240411
  Transmission Date: 20240715
  Serious: No
  Sender: FDA-Public Use
  Company Number: ES-JNJFOC-20210300062

PATIENT
  Age: 58 Year
  Sex: Male

DRUGS (2)
  1. SIMPONI [Suspect]
     Active Substance: GOLIMUMAB
     Indication: Colitis ulcerative
     Route: 058
     Dates: start: 20190515, end: 20210223
  2. SIMPONI [Suspect]
     Active Substance: GOLIMUMAB
     Route: 058
     Dates: start: 20180415, end: 20190515

REACTIONS (1)
  - Adenocarcinoma of colon [Recovered/Resolved]

NARRATIVE: CASE EVENT DATE: 20190524
